FAERS Safety Report 19140274 (Version 1)
Quarter: 2021Q2

REPORT INFORMATION
  Report Type: Spontaneous
  Country: ES (occurrence: ES)
  Receive Date: 20210415
  Receipt Date: 20210415
  Transmission Date: 20210717
  Serious: Yes (Death, Hospitalization)
  Sender: FDA-Public Use
  Company Number: ES-JNJFOC-20210413006

PATIENT
  Age: 5 Month

DRUGS (3)
  1. STAYVEER [Suspect]
     Active Substance: BOSENTAN
     Indication: PULMONARY HYPERTENSION
     Route: 065
  2. PROSTACYCLIN [Suspect]
     Active Substance: EPOPROSTENOL
     Indication: VASODILATATION
     Route: 065
  3. NITRIC OXIDE. [Suspect]
     Active Substance: NITRIC OXIDE
     Indication: VASODILATATION
     Route: 065

REACTIONS (6)
  - Product use issue [Unknown]
  - Pulmonary oedema [Fatal]
  - Hypoxia [Fatal]
  - Pneumothorax [Fatal]
  - Hyperlactacidaemia [Fatal]
  - Off label use [Unknown]
